FAERS Safety Report 14110262 (Version 1)
Quarter: 2017Q4

REPORT INFORMATION
  Report Type: Spontaneous
  Country: AU (occurrence: AU)
  Receive Date: 20171020
  Receipt Date: 20171020
  Transmission Date: 20180321
  Serious: Yes (Death, Hospitalization, Other)
  Sender: FDA-Public Use
  Company Number: AU-GILEAD-2017-0299697

PATIENT
  Age: 49 Year
  Sex: Male
  Weight: 79 kg

DRUGS (2)
  1. SOVALDI [Suspect]
     Active Substance: SOFOSBUVIR
     Indication: PRODUCT USED FOR UNKNOWN INDICATION
     Dosage: UNK
     Route: 065
     Dates: start: 20160728
  2. DAKLINZA [Suspect]
     Active Substance: DACLATASVIR
     Indication: PRODUCT USED FOR UNKNOWN INDICATION
     Dosage: UNK
     Route: 065
     Dates: start: 20160728

REACTIONS (6)
  - Hypovolaemic shock [Unknown]
  - Multiple organ dysfunction syndrome [Unknown]
  - Varices oesophageal [Unknown]
  - Upper gastrointestinal haemorrhage [Fatal]
  - Gastrointestinal haemorrhage [Fatal]
  - Pulseless electrical activity [Unknown]

NARRATIVE: CASE EVENT DATE: 20160916
